FAERS Safety Report 18012744 (Version 1)
Quarter: 2020Q3

REPORT INFORMATION
  Report Type: Spontaneous
  Country: NL (occurrence: NL)
  Receive Date: 20200713
  Receipt Date: 20200713
  Transmission Date: 20201103
  Serious: Yes (Other)
  Sender: FDA-Public Use
  Company Number: NL-TEVA-2020-NL-1798725

PATIENT
  Age: 21 Year
  Sex: Female
  Weight: 65 kg

DRUGS (3)
  1. MICROGYNON (ETHINYLESTRADIOL/LEVONORGESTREL) [Concomitant]
     Active Substance: ETHINYL ESTRADIOL\LEVONORGESTREL ACETATE
     Dosage: 30/150 ?G (MICROGRAM), THERAPY START AND END DATE : ASKED BUT UNKNOWN
  2. PROTOPIC [Concomitant]
     Active Substance: TACROLIMUS
     Dosage: 1 DOSAGE FORM, 2 DAYS PROTOPIC, THERAPY START AND END DATE : ASKED BUT UNKNOWN
  3. BETAMETHASON [Suspect]
     Active Substance: BETAMETHASONE
     Indication: DERMATITIS ATOPIC
     Dosage: IF NECESSARY AND LAST SIX MONTHS: 1X PER DAY 5 DAYS A WEEK, 2 DAYS PROTOPIC, UNIT DOSE : 1 DF
     Dates: start: 2004

REACTIONS (10)
  - Eczema [Unknown]
  - Infection [Not Recovered/Not Resolved]
  - Skin atrophy [Not Recovered/Not Resolved]
  - Central obesity [Not Recovered/Not Resolved]
  - Hyperadrenocorticism [Not Recovered/Not Resolved]
  - Insomnia [Not Recovered/Not Resolved]
  - Lymphoedema [Not Recovered/Not Resolved]
  - Fatigue [Not Recovered/Not Resolved]
  - Skin striae [Not Recovered/Not Resolved]
  - Mood swings [Not Recovered/Not Resolved]

NARRATIVE: CASE EVENT DATE: 20191210
